FAERS Safety Report 12144046 (Version 3)
Quarter: 2016Q2

REPORT INFORMATION
  Report Type: Spontaneous
  Country: US (occurrence: US)
  Receive Date: 20160304
  Receipt Date: 20160523
  Transmission Date: 20160815
  Serious: Yes (Life-Threatening, Hospitalization, Other)
  Sender: FDA-Public Use
  Company Number: US-009507513-1603USA002058

PATIENT
  Age: 75 Year
  Sex: Male
  Weight: 76.19 kg

DRUGS (5)
  1. METFORMIN [Concomitant]
     Active Substance: METFORMIN HYDROCHLORIDE
     Dosage: UNK
     Dates: start: 201507
  2. PRANDIN (REPAGLINIDE) [Concomitant]
     Dosage: UNK
     Dates: end: 20150722
  3. PRANDIN (REPAGLINIDE) [Concomitant]
     Dosage: UNK
     Dates: start: 201507
  4. METFORMIN [Concomitant]
     Active Substance: METFORMIN HYDROCHLORIDE
     Dosage: UNK
     Dates: end: 20150722
  5. JANUVIA [Suspect]
     Active Substance: SITAGLIPTIN PHOSPHATE
     Dosage: UNK
     Route: 048
     Dates: end: 20150722

REACTIONS (6)
  - Blood calcium increased [Unknown]
  - Pancreatitis acute [Recovered/Resolved]
  - Glomerular filtration rate decreased [Unknown]
  - Ileus [Unknown]
  - Blood glucose increased [Unknown]
  - Intraductal papillary-mucinous carcinoma of pancreas [Unknown]

NARRATIVE: CASE EVENT DATE: 20150722
